FAERS Safety Report 8923004 (Version 4)
Quarter: 2013Q1

REPORT INFORMATION
  Report Type: Spontaneous
  Country: US (occurrence: None)
  Receive Date: 20121115
  Receipt Date: 20130226
  Transmission Date: 20140127
  Serious: Yes (Hospitalization, Other)
  Sender: FDA-Public Use
  Company Number: US-JNJFOC-20121102378

PATIENT
  Age: 72 Year
  Sex: Male
  Weight: 76.6 kg

DRUGS (19)
  1. DECITABINE [Suspect]
     Indication: ACUTE MYELOID LEUKAEMIA
     Dosage: 20 MG/M2,  IN 1 CYCLICAL,  INTRAVENOUS
     Route: 042
     Dates: start: 20120830
  2. ACYCLOVIR (ACICLOVIR) [Concomitant]
  3. CHLORHEXIDINE MOUTHWASH (CHLORHEXIDINE) [Concomitant]
  4. DIPENHYDRAMINE (DIPHENHYDRAMINE) [Concomitant]
  5. DOCUSATE SODIUM (DOCUSATE SODIUM) [Concomitant]
  6. FLOMAX (TAMSULOSIN HYDROCHLORIDE) [Concomitant]
  7. FLUCONAZOLE (FLUCONAZOLE) [Concomitant]
  8. FOLIC ACID (FOLIC ACID) [Concomitant]
  9. LORAZEPAM (LORAZEPAM) [Concomitant]
  10. METOCLOPRAMIDE HCL (METOCLOPRAMIDE HYDROCHLORIDE) [Concomitant]
  11. NYSTATIN (NYSTATIN) [Concomitant]
  12. OLANZAPINE (OLANZAPINE) [Concomitant]
  13. OXYCODONE (OXYCODONE) [Concomitant]
  14. POLYETHYLENE GLYCOL (MACROGOL) [Concomitant]
  15. PROCHLORPERAZINE MALEATE (PROCHLORPERAZINE MALEATE) [Concomitant]
  16. SARNA (SARNA) [Concomitant]
  17. SYNTHROID (LEVOTHYROXINE SODIUM) [Concomitant]
  18. VANCOMYCIN (VANCOMYCIN) [Concomitant]
  19. ZOSYN (PIP/TAZO) [Concomitant]

REACTIONS (10)
  - Febrile neutropenia [None]
  - Pneumonia [None]
  - Rash [None]
  - Decreased appetite [None]
  - Dysphagia [None]
  - Oesophageal candidiasis [None]
  - Pancytopenia [None]
  - Fall [None]
  - Excoriation [None]
  - Delirium [None]
